FAERS Safety Report 24791485 (Version 1)
Quarter: 2024Q4

REPORT INFORMATION
  Report Type: Report from Study
  Country: BR (occurrence: BR)
  Receive Date: 20241231
  Receipt Date: 20241231
  Transmission Date: 20250114
  Serious: Yes (Hospitalization)
  Sender: BIOGEN
  Company Number: BR-BIOGEN-2024BI01295170

PATIENT
  Sex: Female
  Weight: 100 kg

DRUGS (1)
  1. TYSABRI [Suspect]
     Active Substance: NATALIZUMAB
     Indication: Multiple sclerosis
     Route: 050
     Dates: start: 2013, end: 202010

REACTIONS (3)
  - Treatment failure [Unknown]
  - Multiple sclerosis relapse [Recovered/Resolved with Sequelae]
  - Multiple sclerosis [Unknown]

NARRATIVE: CASE EVENT DATE: 20200101
